FAERS Safety Report 25391417 (Version 1)
Quarter: 2025Q2

REPORT INFORMATION
  Report Type: Spontaneous
  Country: FR (occurrence: FR)
  Receive Date: 20250603
  Receipt Date: 20250603
  Transmission Date: 20250716
  Serious: Yes (Other)
  Sender: MYLAN
  Company Number: None

PATIENT
  Age: 63 Year
  Sex: Female

DRUGS (8)
  1. ZOLPIDEM [Suspect]
     Active Substance: ZOLPIDEM TARTRATE
     Indication: Product used for unknown indication
     Dosage: UNK, QD 10 OR 20 MG AT BEDTIME
     Dates: start: 2017
  2. ZOLPIDEM [Suspect]
     Active Substance: ZOLPIDEM TARTRATE
     Dosage: UNK, QD 10 OR 20 MG AT BEDTIME
     Route: 048
     Dates: start: 2017
  3. ZOLPIDEM [Suspect]
     Active Substance: ZOLPIDEM TARTRATE
     Dosage: UNK, QD 10 OR 20 MG AT BEDTIME
     Route: 048
     Dates: start: 2017
  4. ZOLPIDEM [Suspect]
     Active Substance: ZOLPIDEM TARTRATE
     Dosage: UNK, QD 10 OR 20 MG AT BEDTIME
     Dates: start: 2017
  5. BROMAZEPAM [Suspect]
     Active Substance: BROMAZEPAM
     Indication: Product used for unknown indication
     Dosage: UNK UNK, TID, MINIMUM 1.5 MG MORNING, NOON, AND EVENING
     Dates: start: 2017
  6. BROMAZEPAM [Suspect]
     Active Substance: BROMAZEPAM
     Dosage: UNK UNK, TID, MINIMUM 1.5 MG MORNING, NOON, AND EVENING
     Route: 048
     Dates: start: 2017
  7. BROMAZEPAM [Suspect]
     Active Substance: BROMAZEPAM
     Dosage: UNK UNK, TID, MINIMUM 1.5 MG MORNING, NOON, AND EVENING
     Route: 048
     Dates: start: 2017
  8. BROMAZEPAM [Suspect]
     Active Substance: BROMAZEPAM
     Dosage: UNK UNK, TID, MINIMUM 1.5 MG MORNING, NOON, AND EVENING
     Dates: start: 2017

REACTIONS (1)
  - Drug use disorder [Not Recovered/Not Resolved]
